FAERS Safety Report 8105725-2 (Version None)
Quarter: 2012Q1

REPORT INFORMATION
  Report Type: 
  Country: None (occurrence: None)
  Receive Date: 20120201
  Receipt Date: 20120127
  Transmission Date: 20120608
  Serious: Yes (Other)
  Sender: FDA-Public Use
  Company Number: FR-ABBOTT-12P-056-0899321-00

PATIENT
  Age: 3 Month
  Sex: Female

DRUGS (6)
  1. SPIRONOLACTONE [Concomitant]
     Indication: PRODUCT USED FOR UNKNOWN INDICATION
  2. MINOXIDIL [Suspect]
     Indication: DRUG ADMINISTRATION ERROR
     Dosage: ONCE
     Route: 048
     Dates: start: 20120107, end: 20120107
  3. NEXIUM [Concomitant]
     Indication: PRODUCT USED FOR UNKNOWN INDICATION
  4. DOMPERIDONE [Concomitant]
     Indication: PRODUCT USED FOR UNKNOWN INDICATION
  5. VALPROIC ACID [Suspect]
     Indication: DRUG ADMINISTRATION ERROR
     Dosage: ONCE
     Route: 048
     Dates: start: 20120107, end: 20120107
  6. LASIX [Concomitant]
     Indication: PRODUCT USED FOR UNKNOWN INDICATION

REACTIONS (3)
  - TACHYCARDIA [None]
  - MEDICATION ERROR [None]
  - DRUG ADMINISTRATION ERROR [None]
